FAERS Safety Report 10761548 (Version 1)
Quarter: 2015Q1

REPORT INFORMATION
  Report Type: Spontaneous
  Country: US (occurrence: None)
  Receive Date: 20150203
  Receipt Date: 20150203
  Transmission Date: 20150721
  Serious: Yes (Hospitalization, Disabling)
  Sender: FDA-Public Use
  Company Number: None

PATIENT
  Age: 21 Year
  Sex: Male
  Weight: 62.6 kg

DRUGS (5)
  1. OMEGA3 [Concomitant]
  2. PROLIXIN [Suspect]
     Active Substance: FLUPHENAZINE HYDROCHLORIDE
     Route: 030
  3. L-THEANINE [Concomitant]
     Active Substance: DIETARY SUPPLEMENT
  4. VIT. C [Concomitant]
  5. HALDOL [Suspect]
     Active Substance: HALOPERIDOL
     Route: 030

REACTIONS (13)
  - Peripheral coldness [None]
  - Incoherent [None]
  - Abnormal behaviour [None]
  - Insomnia [None]
  - Tongue disorder [None]
  - Aggression [None]
  - Hyperhidrosis [None]
  - Impaired self-care [None]
  - Documented hypersensitivity to administered product [None]
  - Cognitive disorder [None]
  - Seizure [None]
  - Headache [None]
  - Decreased interest [None]
